FAERS Safety Report 15326748 (Version 1)
Quarter: 2018Q3

REPORT INFORMATION
  Report Type: Spontaneous
  Country: US (occurrence: US)
  Receive Date: 20180828
  Receipt Date: 20180828
  Transmission Date: 20181010
  Serious: No
  Sender: FDA-Public Use
  Company Number: US-AMAG PHARMACEUTICALS, INC.-AMAG201803786

PATIENT
  Age: 49 Year
  Sex: Female
  Weight: 54.42 kg

DRUGS (5)
  1. HYALURONIC ACID [Concomitant]
     Active Substance: HYALURONIC ACID
     Indication: PUDENDAL CANAL SYNDROME
     Dosage: UNK
     Route: 061
  2. HYALURONIC ACID [Concomitant]
     Active Substance: HYALURONIC ACID
     Indication: PUDENDAL CANAL SYNDROME
     Dosage: UNK
     Route: 065
  3. BOTOX [Concomitant]
     Active Substance: ONABOTULINUMTOXINA
     Indication: PUDENDAL CANAL SYNDROME
     Dosage: UNK
     Route: 067
  4. INTRAROSA [Suspect]
     Active Substance: PRASTERONE
     Indication: PELVIC FLOOR REPAIR
     Dosage: 6.5 MG, QHS
     Route: 067
     Dates: start: 20180712
  5. DIAZEPAM. [Concomitant]
     Active Substance: DIAZEPAM
     Indication: PUDENDAL CANAL SYNDROME
     Dosage: UNK
     Route: 065

REACTIONS (4)
  - Abdominal discomfort [Unknown]
  - Vulvovaginal disorder [Unknown]
  - Dizziness [Unknown]
  - Off label use [Unknown]

NARRATIVE: CASE EVENT DATE: 201807
